FAERS Safety Report 10557710 (Version 2)
Quarter: 2014Q4

REPORT INFORMATION
  Report Type: Spontaneous
  Country: US (occurrence: US)
  Receive Date: 20141031
  Receipt Date: 20141215
  Transmission Date: 20150529
  Serious: Yes (Hospitalization)
  Sender: FDA-Public Use
  Company Number: US-BAYER-2014-160617

PATIENT
  Age: 22 Year
  Sex: Female
  Weight: 92.52 kg

DRUGS (5)
  1. MIRENA [Suspect]
     Active Substance: LEVONORGESTREL
     Indication: CONTRACEPTION
     Dosage: 20 MCG/24HR, CONT
     Route: 015
     Dates: start: 20080403, end: 20101006
  2. LEXAPRO [Concomitant]
     Active Substance: ESCITALOPRAM OXALATE
     Dosage: UNK
     Dates: start: 201010
  3. ADVIL [Concomitant]
     Active Substance: IBUPROFEN
     Dosage: UNK
     Dates: start: 201010
  4. MIRENA [Suspect]
     Active Substance: LEVONORGESTREL
     Indication: MENORRHAGIA
  5. ALLEGRA [Concomitant]
     Active Substance: FEXOFENADINE HYDROCHLORIDE
     Dosage: UNK
     Dates: start: 201010

REACTIONS (14)
  - Genital haemorrhage [None]
  - Abdominal pain [None]
  - Depression [None]
  - Uterine perforation [None]
  - Fear [None]
  - Depressed mood [None]
  - Pelvic pain [None]
  - Emotional distress [None]
  - Medical device discomfort [None]
  - Back pain [None]
  - Device dislocation [None]
  - Internal injury [None]
  - Injury [None]
  - Anxiety [None]

NARRATIVE: CASE EVENT DATE: 201009
